FAERS Safety Report 7220150-4 (Version None)
Quarter: 2011Q1

REPORT INFORMATION
  Report Type: 
  Country: None (occurrence: None)
  Receive Date: 20110111
  Receipt Date: 20110104
  Transmission Date: 20110831
  Serious: Yes (Death, Hospitalization, Other)
  Sender: FDA-Public Use
  Company Number: US-BAXTER-2010BH030613

PATIENT
  Age: 65 Year
  Sex: Female

DRUGS (5)
  1. ALBUTEROL [Concomitant]
     Indication: DYSPNOEA
     Route: 055
     Dates: start: 20091004, end: 20091004
  2. ANECTINE [Suspect]
     Indication: PRODUCT USED FOR UNKNOWN INDICATION
     Route: 042
     Dates: start: 20091004
  3. OXYGEN [Concomitant]
     Indication: DYSPNOEA
     Route: 055
     Dates: start: 20091004, end: 20090101
  4. NITROGLYCERIN [Suspect]
     Indication: PRODUCT USED FOR UNKNOWN INDICATION
     Route: 060
     Dates: start: 20091004, end: 20091004
  5. MIDAZOLAM HYDROCHLORIDE [Suspect]
     Indication: AGGRESSION
     Route: 042
     Dates: start: 20091004, end: 20090101

REACTIONS (8)
  - ACUTE MYOCARDIAL INFARCTION [None]
  - CARDIO-RESPIRATORY ARREST [None]
  - CARDIOMYOPATHY [None]
  - CARDIAC ARREST [None]
  - PULSE ABNORMAL [None]
  - BLOOD PRESSURE ABNORMAL [None]
  - COMA [None]
  - HYPOXIC-ISCHAEMIC ENCEPHALOPATHY [None]
